FAERS Safety Report 24147414 (Version 1)
Quarter: 2024Q3

REPORT INFORMATION
  Report Type: Spontaneous
  Country: GB (occurrence: GB)
  Receive Date: 20240729
  Receipt Date: 20240729
  Transmission Date: 20241017
  Serious: Yes (Disabling, Other)
  Sender: ORGANON
  Company Number: None

PATIENT
  Age: 63 Year
  Sex: Male
  Weight: 78 kg

DRUGS (3)
  1. FINASTERIDE [Suspect]
     Active Substance: FINASTERIDE
     Dosage: 5 MG DAILY
     Route: 065
     Dates: end: 20240710
  2. TAMSULOSIN [Concomitant]
     Active Substance: TAMSULOSIN
     Indication: Benign prostatic hyperplasia
     Dosage: UNK
  3. ATORVASTATIN [Concomitant]
     Active Substance: ATORVASTATIN
     Dosage: UNK

REACTIONS (4)
  - Erectile dysfunction [Not Recovered/Not Resolved]
  - Loss of libido [Not Recovered/Not Resolved]
  - Retrograde ejaculation [Not Recovered/Not Resolved]
  - Depression [Not Recovered/Not Resolved]
